FAERS Safety Report 4277709-6 (Version None)
Quarter: 2004Q1

REPORT INFORMATION
  Report Type: 
  Country: None (occurrence: None)
  Receive Date: 20040123
  Receipt Date: 20040116
  Transmission Date: 20041129
  Serious: Yes (Other)
  Sender: FDA-Public Use
  Company Number: PHBS2004BR00991

PATIENT
  Sex: Male

DRUGS (3)
  1. TEGRETOL [Suspect]
     Dosage: 600 MG, TID
     Route: 048
     Dates: start: 20031001, end: 20031201
  2. TEGRETOL [Suspect]
     Dosage: 800 MG, BID
     Route: 048
     Dates: start: 20031201
  3. AMPLICTIL [Concomitant]
     Route: 065

REACTIONS (5)
  - HALLUCINATION, AUDITORY [None]
  - HALLUCINATION, VISUAL [None]
  - HALLUCINATIONS, MIXED [None]
  - HYPERSOMNIA [None]
  - SOMNOLENCE [None]
